FAERS Safety Report 17812368 (Version 2)
Quarter: 2020Q2

REPORT INFORMATION
  Report Type: Spontaneous
  Country: JP (occurrence: JP)
  Receive Date: 20200521
  Receipt Date: 20200608
  Transmission Date: 20200714
  Serious: Yes (Death, Other)
  Sender: FDA-Public Use
  Company Number: JP-ELI_LILLY_AND_COMPANY-JP202005005437

PATIENT
  Age: 70 Year
  Sex: Male

DRUGS (5)
  1. DOCETAXEL. [Concomitant]
     Active Substance: DOCETAXEL
     Indication: LUNG SQUAMOUS CELL CARCINOMA RECURRENT
     Dosage: 115 MG, CYCLICAL
     Route: 041
     Dates: start: 20200124
  2. DOCETAXEL. [Concomitant]
     Active Substance: DOCETAXEL
     Dosage: 92 MG, CYCLICAL
     Route: 041
     Dates: start: 20200403, end: 20200403
  3. CYRAMZA [Suspect]
     Active Substance: RAMUCIRUMAB
     Indication: LUNG SQUAMOUS CELL CARCINOMA RECURRENT
     Dosage: 840 MG, CYCLICAL
     Route: 041
     Dates: start: 20200124
  4. CYRAMZA [Suspect]
     Active Substance: RAMUCIRUMAB
     Dosage: 670 MG, CYCLICAL
     Route: 041
     Dates: start: 20200403, end: 20200403
  5. G LASTA [Concomitant]
     Active Substance: PEGFILGRASTIM
     Dosage: UNK, CYCLICAL
     Dates: start: 20200221

REACTIONS (7)
  - Taste disorder [Unknown]
  - Neutrophil count decreased [Unknown]
  - Malaise [Unknown]
  - Oropharyngeal discomfort [Unknown]
  - Nausea [Unknown]
  - Interstitial lung disease [Fatal]
  - Gastric ulcer [Unknown]

NARRATIVE: CASE EVENT DATE: 20200203
